FAERS Safety Report 8133157-X (Version None)
Quarter: 2012Q1

REPORT INFORMATION
  Report Type: 
  Country: None (occurrence: None)
  Receive Date: 20120213
  Receipt Date: 20120208
  Transmission Date: 20120608
  Serious: Yes (Hospitalization)
  Sender: FDA-Public Use
  Company Number: PHHO2012FR002360

PATIENT
  Sex: Male

DRUGS (11)
  1. RADIOTHERAPY [Suspect]
     Indication: NON-SMALL CELL LUNG CANCER
     Dosage: UNK
     Dates: start: 20111013
  2. ASPIRIN [Concomitant]
  3. VESICARE [Concomitant]
  4. MORPHINE SULFATE [Concomitant]
  5. OMEPRAZOLE [Concomitant]
  6. MORPHINE SULFATE [Concomitant]
  7. EVEROLIMUS [Suspect]
     Indication: NON-SMALL CELL LUNG CANCER
     Dosage: 5 MG, DAILY
     Route: 048
     Dates: start: 20111004
  8. PROPRANOLOL [Concomitant]
  9. MOVIPREP [Concomitant]
  10. LANSOYL [Concomitant]
  11. GAVISCON [Concomitant]

REACTIONS (1)
  - OESOPHAGITIS [None]
